FAERS Safety Report 6918657-X (Version None)
Quarter: 2010Q3

REPORT INFORMATION
  Report Type: 
  Country: None (occurrence: None)
  Receive Date: 20100811
  Receipt Date: 20100803
  Transmission Date: 20110219
  Serious: Yes (Other)
  Sender: FDA-Public Use
  Company Number: AU-PFIZER INC-2010086040

PATIENT
  Age: 65 Year
  Sex: Female

DRUGS (6)
  1. SUTENT [Suspect]
     Dosage: UNK
  2. SOTALOL [Concomitant]
     Dosage: UNK
  3. LEVOTHYROXINE SODIUM [Concomitant]
     Dosage: 100 UG, 4X/WEEK
  4. MODURETIC 5-50 [Concomitant]
     Dosage: 0.5 TABLET PER DAY
  5. FISH OIL [Concomitant]
  6. CALCIUM [Concomitant]

REACTIONS (2)
  - ACCIDENTAL EXPOSURE [None]
  - ANAPHYLACTIC REACTION [None]
